FAERS Safety Report 5420245-1 (Version None)
Quarter: 2007Q3

REPORT INFORMATION
  Report Type: 
  Country: None (occurrence: None)
  Receive Date: 20070815
  Receipt Date: 20070730
  Transmission Date: 20080115
  Serious: Yes (Other)
  Sender: FDA-Public Use
  Company Number: T07-USA-03327-01

PATIENT
  Age: 29 Year
  Sex: Female
  Weight: 103 kg

DRUGS (5)
  1. CERVIDIL [Suspect]
     Indication: LABOUR INDUCTION
     Dosage: 10 MG ONCE VG
     Route: 067
     Dates: start: 20070717, end: 20070718
  2. INTRAVENOUS FLUID [Suspect]
  3. MISOPROSTOL [Concomitant]
  4. OXYTOCIN [Concomitant]
  5. PROSTAGLANDIN F2-ALPHA (PROSTAGLANDIN F2 ALPHA) [Concomitant]

REACTIONS (4)
  - DRUG EXPOSURE DURING PREGNANCY [None]
  - HAEMATOCRIT DECREASED [None]
  - POSTPARTUM HAEMORRHAGE [None]
  - UTERINE ATONY [None]
